FAERS Safety Report 9664774 (Version 1)
Quarter: 2013Q4

REPORT INFORMATION
  Report Type: Spontaneous
  Country: AR (occurrence: AR)
  Receive Date: 20131101
  Receipt Date: 20131101
  Transmission Date: 20140711
  Serious: Yes (Hospitalization)
  Sender: FDA-Public Use
  Company Number: AR-ABBVIE-13P-007-1161773-00

PATIENT
  Age: 69 Year
  Sex: Female

DRUGS (3)
  1. HUMIRA [Suspect]
     Indication: RHEUMATOID ARTHRITIS
     Route: 058
     Dates: start: 20100601, end: 201304
  2. HUMIRA [Suspect]
     Route: 058
  3. ANXIOLYTIC (UNKNOWN DRUG) [Suspect]
     Indication: PRODUCT USED FOR UNKNOWN INDICATION

REACTIONS (7)
  - Toxicity to various agents [Unknown]
  - Syncope [Unknown]
  - Convulsion [Unknown]
  - Pericardial effusion [Unknown]
  - Hemiplegia [Unknown]
  - Amnesia [Unknown]
  - Disorientation [Unknown]
